FAERS Safety Report 14609854 (Version 1)
Quarter: 2018Q1

REPORT INFORMATION
  Report Type: Spontaneous
  Country: US (occurrence: US)
  Receive Date: 20180307
  Receipt Date: 20180307
  Transmission Date: 20180509
  Serious: No
  Sender: FDA-Public Use
  Company Number: None

PATIENT
  Age: 38 Year
  Sex: Female

DRUGS (5)
  1. NALTREXONE [Concomitant]
     Active Substance: NALTREXONE
  2. NABUMETONE. [Concomitant]
     Active Substance: NABUMETONE
  3. ENBREL [Suspect]
     Active Substance: ETANERCEPT
     Indication: OSTEOARTHRITIS
     Dosage: ?          OTHER FREQUENCY:ONCE EVERY WEEK;?
     Route: 058
     Dates: start: 20160719
  4. CYCLOBENZAPR [Concomitant]
     Active Substance: CYCLOBENZAPRINE
  5. PLAQUENIL [Concomitant]
     Active Substance: HYDROXYCHLOROQUINE SULFATE

REACTIONS (5)
  - Muscle spasms [None]
  - Stomatitis [None]
  - Urticaria [None]
  - Arthropathy [None]
  - Fatigue [None]

NARRATIVE: CASE EVENT DATE: 20180307
